FAERS Safety Report 22635856 (Version 1)
Quarter: 2023Q2

REPORT INFORMATION
  Report Type: Spontaneous
  Country: AR (occurrence: AR)
  Receive Date: 20230623
  Receipt Date: 20230623
  Transmission Date: 20230721
  Serious: Yes (Death, Hospitalization)
  Sender: FDA-Public Use
  Company Number: AR-ELI_LILLY_AND_COMPANY-AR202306012046

PATIENT
  Age: 51 Year
  Sex: Female

DRUGS (1)
  1. VERZENIO [Suspect]
     Active Substance: ABEMACICLIB
     Indication: Breast cancer metastatic
     Dosage: 200 MG, DAILY
     Route: 048
     Dates: start: 20221118, end: 20230527

REACTIONS (6)
  - Death [Fatal]
  - Confusional state [Unknown]
  - Tachycardia [Unknown]
  - Computerised tomogram head abnormal [Unknown]
  - Respiration abnormal [Unknown]
  - Drug clearance decreased [Unknown]

NARRATIVE: CASE EVENT DATE: 20230524
